FAERS Safety Report 10652374 (Version 3)
Quarter: 2015Q2

REPORT INFORMATION
  Report Type: Report from Study
  Country: US (occurrence: US)
  Receive Date: 20141215
  Receipt Date: 20150518
  Transmission Date: 20150821
  Serious: Yes (Other)
  Sender: FDA-Public Use
  Company Number: US-SA-2014SA146147

PATIENT
  Age: 40 Year
  Sex: Male
  Weight: 72.57 kg

DRUGS (2)
  1. PHENYTOIN SODIUM. [Concomitant]
     Active Substance: PHENYTOIN SODIUM
     Indication: SEIZURE
     Dates: start: 2014
  2. AUBAGIO [Suspect]
     Active Substance: TERIFLUNOMIDE
     Indication: MULTIPLE SCLEROSIS
     Route: 048
     Dates: start: 20141014, end: 20141201

REACTIONS (14)
  - Pneumonia [Unknown]
  - Abdominal distension [Recovered/Resolved]
  - Limb discomfort [Unknown]
  - Bone pain [Unknown]
  - Fatigue [Recovered/Resolved]
  - Fatigue [Unknown]
  - Arthralgia [Unknown]
  - Multiple sclerosis relapse [Unknown]
  - Abdominal discomfort [Recovered/Resolved]
  - Eating disorder [Unknown]
  - Diarrhoea [Recovered/Resolved]
  - Nausea [Unknown]
  - Gait disturbance [Unknown]
  - Decreased appetite [Recovered/Resolved]

NARRATIVE: CASE EVENT DATE: 2014
